FAERS Safety Report 18048999 (Version 6)
Quarter: 2022Q1

REPORT INFORMATION
  Report Type: Report from Study
  Country: US (occurrence: US)
  Receive Date: 20200721
  Receipt Date: 20220103
  Transmission Date: 20220424
  Serious: Yes (Hospitalization, Other)
  Sender: FDA-Public Use
  Company Number: US-SHIRE-US202010786

PATIENT
  Age: 57 Year
  Sex: Female
  Weight: 64 kg

DRUGS (26)
  1. TEDUGLUTIDE [Suspect]
     Active Substance: TEDUGLUTIDE
     Indication: Short-bowel syndrome
     Dosage: 0.32 MILLIGRAM, QD
     Route: 058
  2. TEDUGLUTIDE [Suspect]
     Active Substance: TEDUGLUTIDE
     Indication: Short-bowel syndrome
     Dosage: 0.32 MILLIGRAM, QD
     Route: 058
  3. TEDUGLUTIDE [Suspect]
     Active Substance: TEDUGLUTIDE
     Indication: Short-bowel syndrome
     Dosage: 0.32 MILLIGRAM, QD
     Route: 058
  4. TEDUGLUTIDE [Suspect]
     Active Substance: TEDUGLUTIDE
     Indication: Short-bowel syndrome
     Dosage: 0.32 MILLIGRAM, QD
     Route: 058
  5. TEDUGLUTIDE [Suspect]
     Active Substance: TEDUGLUTIDE
     Dosage: 0.320 UNIT WAS NOT REPORTED, 1X/DAY:QD
     Route: 058
     Dates: start: 20200108
  6. TEDUGLUTIDE [Suspect]
     Active Substance: TEDUGLUTIDE
     Dosage: 0.320 UNIT WAS NOT REPORTED, 1X/DAY:QD
     Route: 058
     Dates: start: 20200108
  7. TEDUGLUTIDE [Suspect]
     Active Substance: TEDUGLUTIDE
     Dosage: 0.320 UNIT WAS NOT REPORTED, 1X/DAY:QD
     Route: 058
     Dates: start: 20200108
  8. TEDUGLUTIDE [Suspect]
     Active Substance: TEDUGLUTIDE
     Dosage: 0.320 UNIT WAS NOT REPORTED, 1X/DAY:QD
     Route: 058
     Dates: start: 20200108
  9. TEDUGLUTIDE [Suspect]
     Active Substance: TEDUGLUTIDE
     Dosage: 0.3200 (UNIT UNKNOWN), QD
     Route: 058
     Dates: start: 20210108
  10. TEDUGLUTIDE [Suspect]
     Active Substance: TEDUGLUTIDE
     Dosage: 0.3200 (UNIT UNKNOWN), QD
     Route: 058
     Dates: start: 20210108
  11. TEDUGLUTIDE [Suspect]
     Active Substance: TEDUGLUTIDE
     Dosage: 0.3200 (UNIT UNKNOWN), QD
     Route: 058
     Dates: start: 20210108
  12. TEDUGLUTIDE [Suspect]
     Active Substance: TEDUGLUTIDE
     Dosage: 0.3200 (UNIT UNKNOWN), QD
     Route: 058
     Dates: start: 20210108
  13. TEDUGLUTIDE [Suspect]
     Active Substance: TEDUGLUTIDE
     Dosage: 0.32 MILLILITER, QD
     Route: 058
  14. TEDUGLUTIDE [Suspect]
     Active Substance: TEDUGLUTIDE
     Dosage: 0.32 MILLILITER, QD
     Route: 058
  15. TEDUGLUTIDE [Suspect]
     Active Substance: TEDUGLUTIDE
     Dosage: 0.32 MILLILITER, QD
     Route: 058
  16. TEDUGLUTIDE [Suspect]
     Active Substance: TEDUGLUTIDE
     Dosage: 0.32 MILLILITER, QD
     Route: 058
  17. NASCOBAL [Concomitant]
     Active Substance: CYANOCOBALAMIN
  18. VITAMINS [Concomitant]
     Active Substance: VITAMINS
  19. UNSPECIFIED INGREDIENT [Concomitant]
     Active Substance: UNSPECIFIED INGREDIENT
  20. PROTONIX [Concomitant]
     Active Substance: PANTOPRAZOLE SODIUM
  21. DIPHENHYDRAMINE [Concomitant]
     Active Substance: DIPHENHYDRAMINE
  22. ONDANSETRON [Concomitant]
     Active Substance: ONDANSETRON
  23. PROMETHAZINE HYDROCHLORIDE [Concomitant]
     Active Substance: PROMETHAZINE HYDROCHLORIDE
  24. OXYCODONE [Concomitant]
     Active Substance: OXYCODONE
  25. FENTANYL [Concomitant]
     Active Substance: FENTANYL
  26. FONDAPARINUX SODIUM [Concomitant]
     Active Substance: FONDAPARINUX SODIUM

REACTIONS (7)
  - Thrombosis [Recovered/Resolved]
  - Gastric perforation [Not Recovered/Not Resolved]
  - Hospitalisation [Unknown]
  - Drug ineffective [Not Recovered/Not Resolved]
  - Syringe issue [Unknown]
  - Catheter placement [Unknown]
  - Inappropriate schedule of product administration [Not Recovered/Not Resolved]

NARRATIVE: CASE EVENT DATE: 20200724
